FAERS Safety Report 16119036 (Version 1)
Quarter: 2019Q1

REPORT INFORMATION
  Report Type: Spontaneous
  Country: FR (occurrence: FR)
  Receive Date: 20190326
  Receipt Date: 20190326
  Transmission Date: 20190418
  Serious: Yes (Hospitalization)
  Sender: FDA-Public Use
  Company Number: FR-ALLERGAN-1912760US

PATIENT
  Sex: Female
  Weight: 2.97 kg

DRUGS (1)
  1. ESCITALOPRAM OXALATE - BP [Suspect]
     Active Substance: ESCITALOPRAM OXALATE
     Indication: DEPRESSION
     Dosage: 15 MG, QD
     Route: 064
     Dates: start: 20180419, end: 20190119

REACTIONS (3)
  - Cephalhaematoma [Recovering/Resolving]
  - Foetal exposure during pregnancy [Unknown]
  - Thrombocytopenia neonatal [Recovered/Resolved]

NARRATIVE: CASE EVENT DATE: 20190120
